FAERS Safety Report 8579593-9 (Version None)
Quarter: 2012Q3

REPORT INFORMATION
  Report Type: 
  Country: None (occurrence: None)
  Receive Date: 20120725
  Receipt Date: 20120725
  Transmission Date: 20120928
  Serious: Yes (Hospitalization)
  Sender: FDA-Public Use
  Company Number: None

PATIENT
  Sex: Male
  Weight: 15.5 kg

DRUGS (2)
  1. DEXAMETHASONE [Suspect]
     Dosage: 24 MG
     Dates: end: 20120721
  2. DAUNORUBICIN HCL [Suspect]
     Dosage: 31 MG
     Dates: end: 20120719

REACTIONS (1)
  - PYREXIA [None]
